FAERS Safety Report 9316295 (Version 1)
Quarter: 2013Q2

REPORT INFORMATION
  Report Type: Spontaneous
  Country: US (occurrence: None)
  Receive Date: 20130528
  Receipt Date: 20130528
  Transmission Date: 20140414
  Serious: Yes (Life-Threatening, Hospitalization)
  Sender: FDA-Public Use
  Company Number: None

PATIENT
  Age: 64 Year
  Sex: Male
  Weight: 85.5 kg

DRUGS (4)
  1. VENLAFAXINE [Suspect]
     Indication: DEPRESSION
     Dosage: AM
     Route: 048
     Dates: start: 20110323, end: 20130402
  2. VENLAFAXINE [Suspect]
     Indication: SCHIZOAFFECTIVE DISORDER
     Dosage: AM
     Route: 048
     Dates: start: 20110323, end: 20130402
  3. QUETIAPINE [Suspect]
     Indication: SCHIZOAFFECTIVE DISORDER
     Route: 048
     Dates: start: 20130402, end: 20130403
  4. QUETIAPINE [Suspect]
     Indication: DEPRESSION
     Route: 048
     Dates: start: 20130402, end: 20130403

REACTIONS (10)
  - Mental status changes [None]
  - Dyskinesia [None]
  - Pyrexia [None]
  - Depressed level of consciousness [None]
  - Respiratory failure [None]
  - Extrapyramidal disorder [None]
  - Cerebrovascular accident [None]
  - Meningitis [None]
  - Encephalitis [None]
  - Neuroleptic malignant syndrome [None]
